FAERS Safety Report 4527313-7 (Version None)
Quarter: 2004Q4

REPORT INFORMATION
  Report Type: 
  Country: None (occurrence: None)
  Receive Date: 20041130
  Receipt Date: 20041012
  Transmission Date: 20050328
  Serious: No
  Sender: FDA-Public Use
  Company Number: FABR-10821

PATIENT
  Age: 44 Year
  Sex: Female
  Weight: 75 kg

DRUGS (7)
  1. FABRAZYME [Suspect]
     Indication: FABRY'S DISEASE
     Dosage: 75 MG Q2WKS IV
     Route: 042
     Dates: start: 20040901
  2. RESTORIL [Concomitant]
  3. TOPROL-XL [Concomitant]
  4. RENAGEL [Concomitant]
  5. ZOCOR [Concomitant]
  6. TUMS [Concomitant]
  7. PREVACID [Concomitant]

REACTIONS (3)
  - BLOOD PRESSURE INCREASED [None]
  - COUGH [None]
  - INSOMNIA [None]
